FAERS Safety Report 4501524-9 (Version None)
Quarter: 2004Q4

REPORT INFORMATION
  Report Type: 
  Country: None (occurrence: None)
  Receive Date: 20041109
  Receipt Date: 20041025
  Transmission Date: 20050328
  Serious: Yes (Hospitalization)
  Sender: FDA-Public Use
  Company Number: 2004AP04865

PATIENT
  Age: 47 Year
  Sex: Female
  Weight: 55 kg

DRUGS (10)
  1. ZOMIG [Suspect]
     Indication: MIGRAINE
     Dosage: 10 MG DAILY PO
     Route: 048
     Dates: start: 20010904, end: 20030101
  2. BUFFERIN [Suspect]
  3. EVE [Suspect]
  4. VOLTAREN [Suspect]
  5. NORSHIN [Suspect]
  6. SEDES G [Suspect]
  7. LOCHOL [Concomitant]
  8. LIPITOR [Concomitant]
  9. HALCION [Concomitant]
  10. ASPIRIN [Concomitant]

REACTIONS (3)
  - ABDOMINAL PAIN [None]
  - CONJUNCTIVAL HAEMORRHAGE [None]
  - OVARIAN DISORDER [None]
